FAERS Safety Report 17447697 (Version 5)
Quarter: 2020Q1

REPORT INFORMATION
  Report Type: Report from Study
  Country: HU (occurrence: HU)
  Receive Date: 20200221
  Receipt Date: 20200323
  Transmission Date: 20200409
  Serious: Yes (Death, Hospitalization)
  Sender: FDA-Public Use
  Company Number: HU-EISAI MEDICAL RESEARCH-EC-2020-070566

PATIENT
  Age: 57 Year
  Sex: Male
  Weight: 53 kg

DRUGS (20)
  1. PANTOPRAZOLE [Concomitant]
     Active Substance: PANTOPRAZOLE
     Dates: start: 20191216
  2. INSUMAN BASAL [Concomitant]
     Active Substance: INSULIN HUMAN
     Dates: start: 200601
  3. FLUIMUCIL [Concomitant]
     Active Substance: ACETYLCYSTEINE
     Dates: start: 20191104
  4. LENVATINIB [Suspect]
     Active Substance: LENVATINIB
     Indication: NON-SMALL CELL LUNG CANCER METASTATIC
     Route: 048
     Dates: start: 20191104, end: 20200210
  5. TENOX [Concomitant]
     Dates: start: 200301
  6. GARGARISMA [Concomitant]
     Dates: start: 20200124
  7. FURON [Concomitant]
     Active Substance: FUROSEMIDE
     Dates: start: 20191125
  8. CLEXANE [Concomitant]
     Active Substance: ENOXAPARIN SODIUM
     Dates: start: 20191104
  9. BETALOC [Concomitant]
     Active Substance: METOPROLOL TARTRATE
     Dates: start: 200301
  10. GENERAL ANESTHESIA [Concomitant]
     Active Substance: UNSPECIFIED INGREDIENT
     Dates: start: 20200124
  11. FORTIMEL [Concomitant]
     Active Substance: DIETARY SUPPLEMENT
     Dates: start: 20200124
  12. DOLFORIN [Concomitant]
     Active Substance: FENTANYL
     Dates: start: 20200128
  13. MEGYRINA [Concomitant]
     Dates: start: 20200124
  14. PEMBROLIZUMAB. [Suspect]
     Active Substance: PEMBROLIZUMAB
     Indication: NON-SMALL CELL LUNG CANCER METASTATIC
     Route: 041
     Dates: start: 20191104, end: 20200106
  15. APRANAX [Concomitant]
     Active Substance: NAPROXEN
     Dates: start: 20200128
  16. HYDROCODIN [Concomitant]
     Active Substance: DIHYDROCODEINE BITARTRATE
     Dates: start: 20191104
  17. CURIDOL [Concomitant]
     Dates: start: 20200124, end: 20200127
  18. PEMBROLIZUMAB. [Suspect]
     Active Substance: PEMBROLIZUMAB
     Route: 041
     Dates: start: 20200124, end: 20200124
  19. INSUMAN RAPID [Concomitant]
     Active Substance: INSULIN HUMAN
     Dates: start: 200601
  20. INSUMAN RAPID [Concomitant]
     Active Substance: INSULIN HUMAN
     Dates: start: 200601

REACTIONS (2)
  - Malnutrition [Fatal]
  - Oral cavity fistula [Not Recovered/Not Resolved]

NARRATIVE: CASE EVENT DATE: 20200210
